FAERS Safety Report 10023376 (Version 1)
Quarter: 2014Q1

REPORT INFORMATION
  Report Type: Report from Study
  Country: FR (occurrence: FR)
  Receive Date: 20140320
  Receipt Date: 20140320
  Transmission Date: 20141002
  Serious: Yes (Hospitalization)
  Sender: FDA-Public Use
  Company Number: FR-ROCHE-1362709

PATIENT
  Sex: Female

DRUGS (4)
  1. RITUXIMAB [Suspect]
     Indication: RHEUMATOID ARTHRITIS
     Dosage: FREQUENCY : DAY 1 AND DAY 15.
     Route: 042
     Dates: start: 20051114, end: 20100526
  2. CORTANCYL [Concomitant]
     Route: 065
     Dates: start: 20051114
  3. ETANERCEPT [Concomitant]
     Route: 065
     Dates: start: 20100526
  4. ETANERCEPT [Concomitant]
     Route: 065
     Dates: start: 20120530

REACTIONS (5)
  - Sciatica [Not Recovered/Not Resolved]
  - Restless legs syndrome [Not Recovered/Not Resolved]
  - Bronchitis [Recovered/Resolved]
  - Cystitis [Recovered/Resolved]
  - Upper respiratory tract infection [Recovered/Resolved]
